FAERS Safety Report 16191717 (Version 2)
Quarter: 2019Q2

REPORT INFORMATION
  Report Type: Report from Study
  Country: US (occurrence: US)
  Receive Date: 20190412
  Receipt Date: 20190509
  Transmission Date: 20190711
  Serious: Yes (Hospitalization, Other)
  Sender: FDA-Public Use
  Company Number: US-BAYER-2019-068357

PATIENT
  Age: 58 Year
  Sex: Male
  Weight: 105.13 kg

DRUGS (2)
  1. NEXAVAR [Suspect]
     Active Substance: SORAFENIB
     Indication: HEPATOCELLULAR CARCINOMA
     Dosage: 400 MG, BID
     Route: 048
     Dates: start: 20190403, end: 201904
  2. CABOMETYX [Concomitant]
     Active Substance: CABOZANTINIB S-MALATE
     Dosage: 20 MG, TID
     Route: 048

REACTIONS (21)
  - Feeding disorder [None]
  - Malaise [None]
  - Dark circles under eyes [None]
  - Drug intolerance [None]
  - Hepatic cirrhosis [Not Recovered/Not Resolved]
  - Pruritus [None]
  - Emotional disorder [None]
  - Non-alcoholic steatohepatitis [None]
  - Anaemia [None]
  - Product dose omission [None]
  - Fatigue [None]
  - Asthenia [None]
  - Crying [None]
  - Insomnia [None]
  - Hepatocellular carcinoma [Not Recovered/Not Resolved]
  - Poor quality sleep [None]
  - Vomiting [Recovering/Resolving]
  - Tumour pain [Recovering/Resolving]
  - Nausea [Recovering/Resolving]
  - Discoloured vomit [None]
  - Weight decreased [None]

NARRATIVE: CASE EVENT DATE: 201904
